FAERS Safety Report 22320810 (Version 1)
Quarter: 2023Q2

REPORT INFORMATION
  Report Type: Spontaneous
  Country: DE (occurrence: None)
  Receive Date: 20230515
  Receipt Date: 20230515
  Transmission Date: 20230722
  Serious: Yes (Other)
  Sender: FDA-Public Use
  Company Number: 2023A107889

PATIENT

DRUGS (1)
  1. KOSELUGO [Suspect]
     Active Substance: SELUMETINIB
     Indication: Off label use
     Route: 048
     Dates: start: 20230101

REACTIONS (3)
  - Tumour haemorrhage [Recovered/Resolved]
  - Neurofibroma [Recovered/Resolved]
  - Off label use [Unknown]
